FAERS Safety Report 14114650 (Version 1)
Quarter: 2017Q4

REPORT INFORMATION
  Report Type: Spontaneous
  Country: US (occurrence: US)
  Receive Date: 20171023
  Receipt Date: 20171023
  Transmission Date: 20180321
  Serious: No
  Sender: FDA-Public Use
  Company Number: US-ALLERGAN-1711740US

PATIENT
  Sex: Female
  Weight: 95.24 kg

DRUGS (1)
  1. LINZESS [Suspect]
     Active Substance: LINACLOTIDE
     Indication: GASTROINTESTINAL DISORDER
     Dosage: 145 ?G, QD
     Route: 048

REACTIONS (5)
  - Product size issue [Unknown]
  - Calculus urinary [Not Recovered/Not Resolved]
  - Drug ineffective [Unknown]
  - Off label use [Unknown]
  - Vulvovaginal burning sensation [Not Recovered/Not Resolved]
